FAERS Safety Report 5383197-9 (Version None)
Quarter: 2007Q3

REPORT INFORMATION
  Report Type: 
  Country: None (occurrence: None)
  Receive Date: 20070710
  Receipt Date: 20070531
  Transmission Date: 20080115
  Serious: Yes (Other)
  Sender: FDA-Public Use
  Company Number: GB-ALLERGAN-0707277US

PATIENT
  Sex: Male

DRUGS (1)
  1. DYSPORT [Suspect]
     Indication: DRUG USE FOR UNKNOWN INDICATION
     Dosage: 300 UNITS, SINGLE
     Route: 030
     Dates: start: 20070125, end: 20070125

REACTIONS (3)
  - DYSPHAGIA [None]
  - SALIVARY HYPERSECRETION [None]
  - SNEEZING [None]
